FAERS Safety Report 22737018 (Version 4)
Quarter: 2024Q1

REPORT INFORMATION
  Report Type: Spontaneous
  Country: US (occurrence: US)
  Receive Date: 20230721
  Receipt Date: 20240307
  Transmission Date: 20240410
  Serious: Yes (Hospitalization, Other)
  Sender: FDA-Public Use
  Company Number: US-PFIZER INC-PV202300102420

PATIENT
  Age: 75 Year
  Sex: Male
  Weight: 81.65 kg

DRUGS (12)
  1. VYNDAMAX [Suspect]
     Active Substance: TAFAMIDIS
     Indication: Cardiac amyloidosis
     Dosage: 61 MG, 1X/DAY WITH WATER
     Route: 048
     Dates: start: 202212
  2. VYNDAMAX [Suspect]
     Active Substance: TAFAMIDIS
     Indication: Cardiac failure
     Dosage: 61 MG, 1X/DAY
     Route: 048
     Dates: start: 202301
  3. VYNDAMAX [Suspect]
     Active Substance: TAFAMIDIS
     Dosage: 61 MG, DAILY
     Route: 048
     Dates: start: 20230101
  4. JARDIANCE [Concomitant]
     Active Substance: EMPAGLIFLOZIN
     Indication: Cardiac disorder
     Dosage: UNK
     Dates: start: 202301
  5. ESCITALOPRAM OXALATE [Concomitant]
     Active Substance: ESCITALOPRAM OXALATE
     Indication: Depression
     Dosage: 10 MG, DAILY
     Dates: start: 2022
  6. POTASSIUM CHLORIDE [Concomitant]
     Active Substance: POTASSIUM CHLORIDE
     Indication: Hypokalaemic syndrome
     Dosage: 40 MEQ, 2X/DAY (2 TAB TWICE A DAY TO EQUAL 40MEQ TWICE A DAY/10MEQ 4 TABS TWICE A DAY)
     Dates: start: 202305
  7. TORSEMIDE [Concomitant]
     Active Substance: TORSEMIDE
     Indication: Oedema
     Dosage: 80 MG, 2X/DAY
     Dates: start: 2022
  8. SPIRONOLACTONE [Concomitant]
     Active Substance: SPIRONOLACTONE
     Indication: Oedema
     Dosage: 12.5 MG, 2X/DAY
     Dates: start: 2022
  9. LEVOTHYROXINE [Concomitant]
     Active Substance: LEVOTHYROXINE\LEVOTHYROXINE SODIUM
     Indication: Thyroid disorder
     Dosage: 50 UG, DAILY
     Dates: start: 2022
  10. FAMOTIDINE [Concomitant]
     Active Substance: FAMOTIDINE
     Indication: Gastric ulcer
     Dosage: 40 MG, DAILY
  11. TRAZODONE HCL [Concomitant]
     Active Substance: TRAZODONE HYDROCHLORIDE
     Indication: Sleep disorder
     Dosage: 50 MG, DAILY
  12. WARFARIN SODIUM [Concomitant]
     Active Substance: WARFARIN SODIUM
     Indication: Coagulopathy
     Dosage: 2.5 MG, DAILY

REACTIONS (14)
  - Cardiac failure chronic [Recovered/Resolved]
  - Hepatic cirrhosis [Recovered/Resolved]
  - Chronic kidney disease [Recovered/Resolved]
  - Atrial fibrillation [Recovered/Resolved]
  - Ascites [Recovered/Resolved]
  - Hepatic failure [Unknown]
  - Blood electrolytes abnormal [Unknown]
  - Sepsis [Recovered/Resolved]
  - Fall [Unknown]
  - Liver disorder [Recovered/Resolved]
  - Anaemia [Recovered/Resolved]
  - Lymphoedema [Unknown]
  - Asthenia [Recovered/Resolved]
  - Blood potassium decreased [Unknown]

NARRATIVE: CASE EVENT DATE: 20230101
